FAERS Safety Report 8104492-6 (Version None)
Quarter: 2012Q1

REPORT INFORMATION
  Report Type: 
  Country: None (occurrence: None)
  Receive Date: 20120130
  Receipt Date: 20120125
  Transmission Date: 20120608
  Serious: Yes (Hospitalization)
  Sender: FDA-Public Use
  Company Number: IT-MERCK-1201ITA00007

PATIENT
  Age: 84 Year
  Sex: Female

DRUGS (8)
  1. RABEPRAZOLE SODIUM [Concomitant]
     Route: 048
  2. AMILORIDE HYDROCHLORIDE AND HYDROCHLOROTHIAZIDE [Concomitant]
     Route: 048
  3. LACIDIPINE [Concomitant]
     Route: 048
  4. TICLOPIDINE HYDROCHLORIDE [Concomitant]
     Route: 048
  5. DOMPERIDONE [Concomitant]
     Route: 065
  6. POTASSIUM CHLORIDE [Concomitant]
     Route: 065
  7. NUTRITIONAL SUPPLEMENTS [Concomitant]
     Route: 065
  8. SINEMET CR [Suspect]
     Indication: PARKINSON'S DISEASE
     Route: 048
     Dates: start: 20111124, end: 20111217

REACTIONS (1)
  - EXTRAPYRAMIDAL DISORDER [None]
